FAERS Safety Report 10248306 (Version 1)
Quarter: 2014Q2

REPORT INFORMATION
  Report Type: Spontaneous
  Country: US (occurrence: US)
  Receive Date: 20140620
  Receipt Date: 20140620
  Transmission Date: 20141212
  Serious: No
  Sender: FDA-Public Use
  Company Number: US-009507513-1406USA009184

PATIENT
  Age: 38 Year
  Sex: Female

DRUGS (3)
  1. ISENTRESS [Suspect]
     Dosage: TOTAL DAILY DOSE: 1.
     Route: 048
  2. ATRIPLA [Suspect]
     Dosage: TOTAL DAILY DOSE: 1.
     Route: 048
  3. EMTRICITABINE (+) TENOFOVIR DISOPROXIL FUMARATE [Suspect]
     Dosage: TOTAL DAILY DOSE: 1.
     Route: 048

REACTIONS (1)
  - Exposure during pregnancy [Unknown]
